FAERS Safety Report 7920732-8 (Version None)
Quarter: 2011Q4

REPORT INFORMATION
  Report Type: 
  Country: None (occurrence: None)
  Receive Date: 20111117
  Receipt Date: 20111108
  Transmission Date: 20120403
  Serious: Yes (Hospitalization)
  Sender: FDA-Public Use
  Company Number: GB-ROCHE-611968

PATIENT
  Sex: Male
  Weight: 69.8 kg

DRUGS (3)
  1. AVASTIN [Suspect]
     Indication: COLON CANCER
     Dosage: FORM, STRENGTH AS PER PROTOCOL.
     Route: 042
  2. PYRIDOXINE HCL [Suspect]
     Indication: PRODUCT USED FOR UNKNOWN INDICATION
     Dosage: INDICATION REPORTED AS CHEMOTHERAPY SIDE EFFECTS.
     Route: 048
     Dates: start: 20090127, end: 20090129
  3. XELODA [Suspect]
     Indication: COLON CANCER
     Dosage: FORM AS PER PROTOCOL. DOSE REPORTED: 2000MG AM AND 2500 PM. THERAPY DISCONTINUED.
     Route: 048
     Dates: start: 20090127, end: 20090129

REACTIONS (1)
  - PERICARDITIS [None]
